FAERS Safety Report 15483656 (Version 1)
Quarter: 2018Q4

REPORT INFORMATION
  Report Type: Spontaneous
  Country: US (occurrence: US)
  Receive Date: 20181003
  Receipt Date: 20181003
  Transmission Date: 20190205
  Serious: Yes (Life-Threatening, Disabling)
  Sender: FDA-Public Use
  Company Number: None

PATIENT
  Age: 20 Year
  Sex: Female
  Weight: 49.9 kg

DRUGS (4)
  1. HRT [Concomitant]
     Active Substance: UNSPECIFIED INGREDIENT
  2. TETRACYCLINE [Suspect]
     Active Substance: TETRACYCLINE
     Indication: ACNE
     Route: 048
  3. TETRACYCLINE [Suspect]
     Active Substance: TETRACYCLINE
     Indication: INFECTION
  4. TETRACYCLINE [Suspect]
     Active Substance: TETRACYCLINE
     Indication: INFECTION
     Route: 048

REACTIONS (10)
  - Neuropathy peripheral [None]
  - Therapy non-responder [None]
  - Ileus paralytic [None]
  - Hallucination [None]
  - Emotional distress [None]
  - Nightmare [None]
  - Abdominal pain [None]
  - Loss of personal independence in daily activities [None]
  - Product complaint [None]
  - Nerve injury [None]

NARRATIVE: CASE EVENT DATE: 1969
